FAERS Safety Report 23058242 (Version 1)
Quarter: 2023Q4

REPORT INFORMATION
  Report Type: Spontaneous
  Country: US (occurrence: US)
  Receive Date: 20231012
  Receipt Date: 20231012
  Transmission Date: 20240110
  Serious: No
  Sender: FDA-Public Use
  Company Number: US-drreddys-SPO/USA/23/0176954

PATIENT
  Age: 44 Year
  Sex: Female

DRUGS (1)
  1. PRAMIPEXOLE [Suspect]
     Active Substance: PRAMIPEXOLE
     Indication: Dementia Alzheimer^s type

REACTIONS (2)
  - Fatigue [Unknown]
  - Rash [Unknown]
